FAERS Safety Report 7654469-X (Version None)
Quarter: 2011Q3

REPORT INFORMATION
  Report Type: 
  Country: None (occurrence: None)
  Receive Date: 20110803
  Receipt Date: 20110722
  Transmission Date: 20111222
  Serious: Yes (Other)
  Sender: FDA-Public Use
  Company Number: CH-GENENTECH-322229

PATIENT
  Sex: Female

DRUGS (6)
  1. XOLAIR [Suspect]
     Indication: ASTHMA
     Dosage: 150 MG, UNKNOWN
     Route: 042
     Dates: start: 20110621
  2. SALMETEROL [Concomitant]
     Indication: PRODUCT USED FOR UNKNOWN INDICATION
     Dosage: 250 MG, BID
  3. VENTOLIN HFA [Concomitant]
     Indication: PRODUCT USED FOR UNKNOWN INDICATION
     Dosage: UNK
  4. AMOXICILLIN AND CLAVULANATE POTASSIUM [Concomitant]
     Indication: CYSTITIS
     Dosage: 1000 MG, UNK
  5. MINERVA [Concomitant]
     Indication: CONTRACEPTION
  6. XOLAIR [Suspect]
     Dosage: 150 MG, UNKNOWN
     Route: 042
     Dates: start: 20110721

REACTIONS (2)
  - NEPHRITIS [None]
  - CYSTITIS [None]
